FAERS Safety Report 8469533-5 (Version None)
Quarter: 2012Q2

REPORT INFORMATION
  Report Type: 
  Country: None (occurrence: None)
  Receive Date: 20120323
  Receipt Date: 20110815
  Transmission Date: 20120825
  Serious: Yes (Other)
  Sender: FDA-Public Use
  Company Number: 163-21880-11081857

PATIENT
  Age: 42 Year
  Sex: Male

DRUGS (4)
  1. LENALIDOMIDE [Suspect]
     Indication: MULTIPLE MYELOMA
     Dosage: 25 MG, DAYS 1-21, PO, 15 MG, DAYS 1-21, PO
     Route: 048
     Dates: start: 20100211, end: 20100705
  2. LENALIDOMIDE [Suspect]
     Indication: MULTIPLE MYELOMA
     Dosage: 25 MG, DAYS 1-21, PO, 15 MG, DAYS 1-21, PO
     Route: 048
     Dates: start: 20100930, end: 20110202
  3. COUMADIN [Concomitant]
  4. DEXAMETHASONE [Concomitant]

REACTIONS (2)
  - NEUTROPENIA [None]
  - PANCYTOPENIA [None]
